FAERS Safety Report 4297345-5 (Version None)
Quarter: 2004Q1

REPORT INFORMATION
  Report Type: 
  Country: None (occurrence: None)
  Receive Date: 20040213
  Receipt Date: 20040204
  Transmission Date: 20041129
  Serious: Yes (Death)
  Sender: FDA-Public Use
  Company Number: NSADSS2001031284

PATIENT
  Age: 47 Year
  Sex: Male

DRUGS (12)
  1. REMICADE [Suspect]
     Indication: ANKYLOSING SPONDYLITIS
     Dosage: SEE IMAGE
     Dates: start: 20010101, end: 20010101
  2. REMICADE [Suspect]
     Indication: RHEUMATOID ARTHRITIS
     Dosage: SEE IMAGE
     Dates: start: 20010101, end: 20010101
  3. REMICADE [Suspect]
     Indication: ANKYLOSING SPONDYLITIS
     Dosage: SEE IMAGE
     Dates: start: 20010702, end: 20010702
  4. REMICADE [Suspect]
     Indication: RHEUMATOID ARTHRITIS
     Dosage: SEE IMAGE
     Dates: start: 20010702, end: 20010702
  5. REMICADE [Suspect]
     Indication: ANKYLOSING SPONDYLITIS
     Dosage: SEE IMAGE
     Dates: start: 20010814, end: 20010814
  6. REMICADE [Suspect]
     Indication: RHEUMATOID ARTHRITIS
     Dosage: SEE IMAGE
     Dates: start: 20010814, end: 20010814
  7. FERRLECIT (TABLETS) FERRIC SODIUM GLUCONATE COMPLEX [Concomitant]
  8. LOSEC OMEPRAZOLE [Concomitant]
  9. MYCOSTATIN [Concomitant]
  10. CEMIDON B6 (NICOVIT FORTE) [Concomitant]
  11. EPOETIN ALPHA (EPOETIN ALPHA) [Concomitant]
  12. CALCIUM CARBONATE (CALCIUM CARBONATE) [Concomitant]

REACTIONS (6)
  - BACTEROIDES INFECTION [None]
  - ENTEROCOCCAL INFECTION [None]
  - ESCHERICHIA INFECTION [None]
  - KLEBSIELLA INFECTION [None]
  - LIVER ABSCESS [None]
  - SEPTIC SHOCK [None]
